FAERS Safety Report 8374075-1 (Version None)
Quarter: 2012Q2

REPORT INFORMATION
  Report Type: 
  Country: None (occurrence: None)
  Receive Date: 20120521
  Receipt Date: 20120511
  Transmission Date: 20120825
  Serious: Yes (Hospitalization)
  Sender: FDA-Public Use
  Company Number: US-CELGENEUS-163-21880-12051641

PATIENT
  Sex: Female

DRUGS (18)
  1. ACYCLOVIR [Concomitant]
     Route: 065
  2. SIMVASTATIN [Concomitant]
     Route: 065
  3. VITAMIN D [Concomitant]
     Route: 065
  4. ZOMETA [Concomitant]
     Route: 065
  5. CALCIUM [Concomitant]
     Route: 065
  6. LOPRESSOR [Concomitant]
     Route: 065
  7. OXYCODONE HCL [Concomitant]
     Route: 065
  8. LORAZEPAM [Concomitant]
     Route: 065
  9. OMEPRAZOLE [Concomitant]
     Route: 065
  10. PRILOSEC [Concomitant]
     Route: 065
  11. REVLIMID [Suspect]
     Indication: MULTIPLE MYELOMA
     Dosage: 5 MILLIGRAM
     Route: 048
     Dates: start: 20100112
  12. FUROSEMIDE [Concomitant]
     Route: 065
  13. GABAPENTIN [Concomitant]
     Route: 065
  14. IMURAN [Concomitant]
     Route: 065
  15. ASPIRIN [Concomitant]
     Route: 065
  16. MILK OF MAGNESIA TAB [Concomitant]
     Route: 065
  17. OXYCONTIN [Concomitant]
     Route: 065
  18. PROCHLORPERAZINE [Concomitant]
     Route: 065

REACTIONS (1)
  - COLON CANCER [None]
